FAERS Safety Report 8186936-7 (Version None)
Quarter: 2012Q1

REPORT INFORMATION
  Report Type: 
  Country: None (occurrence: None)
  Receive Date: 20120213
  Receipt Date: 20111031
  Transmission Date: 20120608
  Serious: No
  Sender: FDA-Public Use
  Company Number: 1000025088

PATIENT
  Age: 54 Year
  Sex: Female

DRUGS (18)
  1. NEXIUM [Concomitant]
  2. BACLOFEN [Concomitant]
  3. CLONIDINE [Concomitant]
  4. VITAMIN D (VITAMIN D) (VITAMIN D) [Concomitant]
  5. TRILEPTAL (OXCARBAZEPINE) (OXCARBAZEPINE) [Concomitant]
  6. TRAMADOL HCL [Concomitant]
  7. SYNTHROID (LEVOTHYROXINE SODIUM) (LEVOTHYROXINE SODIUM) [Concomitant]
  8. ENBREL [Concomitant]
  9. TOPAMAX (TOPIRAMATE) (TOPIRAMATE) [Concomitant]
  10. SAVELLA [Suspect]
     Indication: FIBROMYALGIA
     Dosage: SEE IMAGE
     Route: 048
     Dates: start: 20110101, end: 20110101
  11. SAVELLA [Suspect]
     Indication: FIBROMYALGIA
     Dosage: SEE IMAGE
     Route: 048
     Dates: start: 20110101, end: 20110101
  12. SAVELLA [Suspect]
     Indication: FIBROMYALGIA
     Dosage: SEE IMAGE
     Route: 048
     Dates: start: 20111001
  13. SAVELLA [Suspect]
     Indication: FIBROMYALGIA
     Dosage: SEE IMAGE
     Route: 048
     Dates: start: 20110101, end: 20111001
  14. SAVELLA [Suspect]
     Indication: FIBROMYALGIA
     Dosage: SEE IMAGE
     Route: 048
     Dates: start: 20110901, end: 20110901
  15. ENJUVIA (ESTROGENS CONJUGATED) (ESTROGENS CONJUGATED) [Concomitant]
  16. BUMEX (BUMETANIDE) (BUMETANIDE) [Concomitant]
  17. VALIUM [Concomitant]
  18. VITAMIN B12 (VITAMIN B12) (VITAMIN B12) [Concomitant]

REACTIONS (2)
  - VOMITING [None]
  - ABDOMINAL PAIN UPPER [None]
